FAERS Safety Report 9524311 (Version 1)
Quarter: 2013Q1

REPORT INFORMATION
  Report Type: Spontaneous
  Country: US (occurrence: None)
  Receive Date: 20130314
  Receipt Date: 20130314
  Transmission Date: 20140127
  Serious: No
  Sender: FDA-Public Use
  Company Number: 1301USA003420

PATIENT
  Age: 40 Year
  Sex: Female
  Weight: 114.3 kg

DRUGS (9)
  1. VICTRELIS (BOCEPREVIR) CAPSULE, 200MG [Suspect]
     Route: 048
  2. RIBAVIRIN (RIBAVIRIN) CAPSULE, 200MG [Suspect]
     Route: 048
  3. PEGASYS (PEGINTERFERON ALFA-2A) INJECTION [Suspect]
     Dosage: 180 MCG/M
  4. BENADRYL (DIPHENHYDRAMINE HYDROCHLORIDE) [Concomitant]
  5. CITALOPRAM [Concomitant]
  6. LOSARTAN/HCT (HYDROCHLOROTHIAZIDE, LOSARTAN POTASSIUM) [Concomitant]
  7. DIAZEPAM [Concomitant]
  8. MAGNESIUM [Concomitant]
  9. TYLENOL (ACETAMINOPHEN) [Concomitant]

REACTIONS (5)
  - White blood cell count decreased [None]
  - Abdominal pain upper [None]
  - Vomiting [None]
  - Gastroenteritis viral [None]
  - Nasopharyngitis [None]
